FAERS Safety Report 7393227-0 (Version None)
Quarter: 2011Q2

REPORT INFORMATION
  Report Type: 
  Country: None (occurrence: None)
  Receive Date: 20110405
  Receipt Date: 20110325
  Transmission Date: 20111010
  Serious: Yes (Hospitalization)
  Sender: FDA-Public Use
  Company Number: US-BIOGENIDEC-2010BI036472

PATIENT
  Age: 35 Year
  Sex: Male

DRUGS (3)
  1. AVONEX [Concomitant]
     Indication: MULTIPLE SCLEROSIS
     Route: 030
     Dates: start: 19990601
  2. TYSABRI [Suspect]
     Indication: MULTIPLE SCLEROSIS
     Route: 042
     Dates: start: 20071127, end: 20100527
  3. TYSABRI [Suspect]
     Route: 042
     Dates: start: 20100805

REACTIONS (4)
  - LOSS OF CONTROL OF LEGS [None]
  - URINARY TRACT INFECTION [None]
  - SYNCOPE [None]
  - MULTIPLE SCLEROSIS RELAPSE [None]
